FAERS Safety Report 10401727 (Version 1)
Quarter: 2014Q3

REPORT INFORMATION
  Report Type: Spontaneous
  Country: US (occurrence: US)
  Receive Date: 20140822
  Receipt Date: 20140822
  Transmission Date: 20150326
  Serious: No
  Sender: FDA-Public Use
  Company Number: US-ASTRAZENECA-2014SE59444

PATIENT
  Age: 751 Month
  Sex: Female
  Weight: 61.2 kg

DRUGS (4)
  1. SYMBICORT [Suspect]
     Active Substance: BUDESONIDE\FORMOTEROL FUMARATE DIHYDRATE
     Indication: CHRONIC OBSTRUCTIVE PULMONARY DISEASE
     Dosage: 80/4.5; 2 PUFF DAILY
     Route: 055
  2. WATER PILL HYDROCHLOROTHIAZIDE [Concomitant]
     Indication: ORGAN DONOR
     Route: 048
  3. PRO AIR HFA [Concomitant]
     Indication: HYPERSENSITIVITY
     Dosage: 8.5 UNK
     Route: 055
  4. PRILOSEC [Suspect]
     Active Substance: OMEPRAZOLE MAGNESIUM
     Indication: DYSPEPSIA
     Dosage: UNKNOWN UNK
     Route: 048

REACTIONS (3)
  - Off label use [Unknown]
  - Intentional product misuse [Unknown]
  - Multiple allergies [Unknown]

NARRATIVE: CASE EVENT DATE: 201408
